FAERS Safety Report 4308956-2 (Version None)
Quarter: 2004Q1

REPORT INFORMATION
  Report Type: 
  Country: None (occurrence: None)
  Receive Date: 20040227
  Receipt Date: 20040216
  Transmission Date: 20041129
  Serious: Yes (Hospitalization)
  Sender: FDA-Public Use
  Company Number: IT-JNJFOC-20040203719

PATIENT
  Age: 58 Year
  Sex: Male

DRUGS (10)
  1. INFLIXIMAB, RECOMBINANT- BLINDED (INFLIXIMAB, RECOMBINANT) LYOPHILIZED [Suspect]
     Indication: COLITIS ULCERATIVE
     Dosage: INTRAVENOUS
     Route: 042
     Dates: start: 20030416
  2. INFLIXIMAB, RECOMBINANT- BLINDED (INFLIXIMAB, RECOMBINANT) LYOPHILIZED [Suspect]
     Indication: COLITIS ULCERATIVE
     Dosage: INTRAVENOUS
     Route: 042
     Dates: start: 20030505
  3. INFLIXIMAB, RECOMBINANT- BLINDED (INFLIXIMAB, RECOMBINANT) LYOPHILIZED [Suspect]
     Indication: COLITIS ULCERATIVE
     Dosage: INTRAVENOUS
     Route: 042
     Dates: start: 20030605
  4. INFLIXIMAB, RECOMBINANT- BLINDED (INFLIXIMAB, RECOMBINANT) LYOPHILIZED [Suspect]
     Indication: COLITIS ULCERATIVE
     Dosage: INTRAVENOUS
     Route: 042
     Dates: start: 20030721
  5. INFLIXIMAB, RECOMBINANT- BLINDED (INFLIXIMAB, RECOMBINANT) LYOPHILIZED [Suspect]
     Indication: COLITIS ULCERATIVE
     Dosage: INTRAVENOUS
     Route: 042
     Dates: start: 20030922
  6. PLACEBO (PLACEBO) LYOPHILIZED POWDER [Suspect]
     Indication: COLITIS ULCERATIVE
     Dosage: INTRAVENOUS
     Route: 042
     Dates: start: 20030416
  7. PLACEBO (PLACEBO) LYOPHILIZED POWDER [Suspect]
     Indication: COLITIS ULCERATIVE
     Dosage: INTRAVENOUS
     Route: 042
     Dates: start: 20030505
  8. PLACEBO (PLACEBO) LYOPHILIZED POWDER [Suspect]
     Indication: COLITIS ULCERATIVE
     Dosage: INTRAVENOUS
     Route: 042
     Dates: start: 20030605
  9. PLACEBO (PLACEBO) LYOPHILIZED POWDER [Suspect]
     Indication: COLITIS ULCERATIVE
     Dosage: INTRAVENOUS
     Route: 042
     Dates: start: 20030721
  10. PLACEBO (PLACEBO) LYOPHILIZED POWDER [Suspect]
     Indication: COLITIS ULCERATIVE
     Dosage: INTRAVENOUS
     Route: 042
     Dates: start: 20030922

REACTIONS (2)
  - COLITIS ULCERATIVE [None]
  - CONDITION AGGRAVATED [None]
